FAERS Safety Report 7452607-5 (Version None)
Quarter: 2011Q2

REPORT INFORMATION
  Report Type: 
  Country: None (occurrence: None)
  Receive Date: 20110425
  Receipt Date: 20110321
  Transmission Date: 20111010
  Serious: Yes (Other)
  Sender: FDA-Public Use
  Company Number: OSCN-FR-1103S-0096

PATIENT
  Sex: Male

DRUGS (2)
  1. OMNISCAN [Suspect]
     Indication: PRODUCT USED FOR UNKNOWN INDICATION
     Dosage: UNSPECIFIED
  2. MAGNEVIST [Suspect]
     Dosage: UNSPECIFIED

REACTIONS (1)
  - NEPHROGENIC SYSTEMIC FIBROSIS [None]
